FAERS Safety Report 4352715-1 (Version None)
Quarter: 2004Q2

REPORT INFORMATION
  Report Type: 
  Country: None (occurrence: None)
  Receive Date: 20040504
  Receipt Date: 20040401
  Transmission Date: 20050107
  Serious: Yes (Other)
  Sender: FDA-Public Use
  Company Number: CA-GLAXOSMITHKLINE-A0506037A

PATIENT
  Age: 51 Year
  Sex: Female
  Weight: 90.9 kg

DRUGS (4)
  1. COMBIVIR [Suspect]
     Dosage: 1TAB TWICE PER DAY
     Route: 048
     Dates: start: 20040201
  2. PHENOBARBITAL TAB [Concomitant]
  3. RAMIPRIL [Concomitant]
  4. THYROID TAB [Concomitant]

REACTIONS (4)
  - BLOOD MAGNESIUM DECREASED [None]
  - FEELING ABNORMAL [None]
  - RESPIRATORY TRACT CONGESTION [None]
  - VENTRICULAR EXTRASYSTOLES [None]
